FAERS Safety Report 16406470 (Version 1)
Quarter: 2019Q2

REPORT INFORMATION
  Report Type: Spontaneous
  Country: FR (occurrence: FR)
  Receive Date: 20190607
  Receipt Date: 20190607
  Transmission Date: 20190711
  Serious: Yes (Hospitalization)
  Sender: FDA-Public Use
  Company Number: FR-MYLANLABS-2019M1052916

PATIENT
  Age: 90 Year
  Sex: Female
  Weight: 71 kg

DRUGS (6)
  1. SERESTA [Concomitant]
     Active Substance: OXAZEPAM
     Indication: DEPRESSION
     Dosage: 3 DOSAGE FORM, QD
     Route: 048
     Dates: start: 20180712
  2. TEMERIT [Concomitant]
     Active Substance: NEBIVOLOL
     Indication: HYPERTROPHIC CARDIOMYOPATHY
     Dosage: LE MATIN
     Route: 048
  3. INEXIUM                            /01479302/ [Suspect]
     Active Substance: ESOMEPRAZOLE MAGNESIUM
     Indication: PRODUCT USED FOR UNKNOWN INDICATION
     Dosage: 1 DOSAGE FORM, QD
     Route: 048
  4. DAFALGAN CODEINE [Concomitant]
     Active Substance: ACETAMINOPHEN\CODEINE PHOSPHATE
     Dosage: 3 GRAM, QD
     Route: 048
  5. PAROXETINE. [Suspect]
     Active Substance: PAROXETINE
     Indication: DEPRESSION
     Dosage: 20 MILLIGRAM, QD
     Route: 048
     Dates: end: 20180713
  6. KARDEGIC [Concomitant]
     Active Substance: ASPIRIN DL-LYSINE
     Indication: HYPERTROPHIC CARDIOMYOPATHY
     Dosage: LE MIDI
     Route: 048

REACTIONS (3)
  - Balance disorder [Recovered/Resolved]
  - Malaise [Recovered/Resolved]
  - Hyponatraemia [Recovered/Resolved]

NARRATIVE: CASE EVENT DATE: 20180705
